FAERS Safety Report 8540702-9 (Version None)
Quarter: 2012Q3

REPORT INFORMATION
  Report Type: 
  Country: None (occurrence: None)
  Receive Date: 20120726
  Receipt Date: 20120724
  Transmission Date: 20120928
  Serious: Yes (Other)
  Sender: FDA-Public Use
  Company Number: US-BAYER-2012-063313

PATIENT
  Age: 78 Year
  Sex: Male
  Weight: 114.74 kg

DRUGS (1)
  1. GADAVIST [Suspect]
     Indication: NUCLEAR MAGNETIC RESONANCE IMAGING BRAIN
     Dosage: 12 ML, UNK
     Dates: start: 20120623

REACTIONS (6)
  - SNEEZING [None]
  - DIZZINESS [None]
  - DISORIENTATION [None]
  - PALLOR [None]
  - EYE MOVEMENT DISORDER [None]
  - NAUSEA [None]
